FAERS Safety Report 22193698 (Version 1)
Quarter: 2023Q2

REPORT INFORMATION
  Report Type: Report from Study
  Country: GB (occurrence: GB)
  Receive Date: 20230410
  Receipt Date: 20230410
  Transmission Date: 20230721
  Serious: Yes (Hospitalization)
  Sender: FDA-Public Use
  Company Number: GB-TEVA-2023-GB-2875484

PATIENT
  Sex: Male

DRUGS (2)
  1. PACLITAXEL [Suspect]
     Active Substance: PACLITAXEL
     Indication: Anal cancer
     Dosage: ON DAYS 1, 8, AND 15 OF EACH 28-DAY-CYCLE
     Route: 042
  2. CARBOPLATIN [Suspect]
     Active Substance: CARBOPLATIN
     Indication: Anal cancer
     Dosage: AUC 6 ON DAY 1 OF EACH 28-DAY CYCLE
     Route: 042

REACTIONS (2)
  - Wound infection [Recovered/Resolved]
  - Fungating wound [Recovering/Resolving]

NARRATIVE: CASE EVENT DATE: 20230215
